FAERS Safety Report 5657367-6 (Version None)
Quarter: 2008Q1

REPORT INFORMATION
  Report Type: 
  Country: None (occurrence: None)
  Receive Date: 20080310
  Receipt Date: 20080303
  Transmission Date: 20080703
  Serious: Yes (Death, Hospitalization, Other)
  Sender: FDA-Public Use
  Company Number: PHHY2008JP00805

PATIENT
  Age: 47 Year
  Sex: Female
  Weight: 48 kg

DRUGS (8)
  1. ZOMETA [Suspect]
     Indication: METASTASES TO BONE
     Dosage: 4 MG, UNK
     Route: 041
     Dates: start: 20080117, end: 20080117
  2. NAVELBINE [Suspect]
     Indication: BREAST CANCER
     Dosage: 25 MG/ DAY
     Route: 041
     Dates: start: 20071211
  3. NAVELBINE [Suspect]
     Dates: start: 20080110
  4. VOLTAREN [Suspect]
     Indication: PYREXIA
     Route: 054
     Dates: start: 20080117, end: 20080117
  5. LOXONIN [Suspect]
     Route: 048
     Dates: start: 20080117, end: 20080121
  6. MUCOSTA [Concomitant]
     Route: 048
     Dates: start: 20070621, end: 20080121
  7. OXYCONTIN [Concomitant]
     Route: 048
     Dates: start: 20071026, end: 20080121
  8. NOVAMIN [Concomitant]
     Indication: NAUSEA
     Route: 048
     Dates: start: 20071026, end: 20080121

REACTIONS (14)
  - ANOREXIA [None]
  - BLOOD CREATINE PHOSPHOKINASE INCREASED [None]
  - BONE MARROW FAILURE [None]
  - DEHYDRATION [None]
  - HAEMOGLOBIN DECREASED [None]
  - MALAISE [None]
  - PAIN IN EXTREMITY [None]
  - PLATELET COUNT DECREASED [None]
  - RENAL DISORDER [None]
  - RENAL FAILURE [None]
  - SEPSIS [None]
  - SEPTIC SHOCK [None]
  - WHITE BLOOD CELL COUNT DECREASED [None]
  - WHITE BLOOD CELL COUNT INCREASED [None]
